FAERS Safety Report 23794575 (Version 1)
Quarter: 2024Q2

REPORT INFORMATION
  Report Type: Spontaneous
  Country: US (occurrence: US)
  Receive Date: 20240429
  Receipt Date: 20240429
  Transmission Date: 20240715
  Serious: No
  Sender: FDA-Public Use
  Company Number: US-BAXTER-2024BAX017262

PATIENT

DRUGS (1)
  1. HEPARIN SODIUM [Suspect]
     Active Substance: HEPARIN SODIUM
     Dosage: UNSPECIFIED DOSE AND FREQUENCY VIA SPECTRUM INFUSION PUMP
     Route: 065

REACTIONS (3)
  - Laboratory test abnormal [Unknown]
  - Incorrect dose administered [Unknown]
  - Device infusion issue [Unknown]

NARRATIVE: CASE EVENT DATE: 20240407
